FAERS Safety Report 13858320 (Version 2)
Quarter: 2017Q3

REPORT INFORMATION
  Report Type: Spontaneous
  Country: JP (occurrence: JP)
  Receive Date: 20170811
  Receipt Date: 20170821
  Transmission Date: 20171127
  Serious: Yes (Death)
  Sender: FDA-Public Use
  Company Number: JP-BAYER-2017-148639

PATIENT
  Age: 49 Year
  Sex: Male
  Weight: 60 kg

DRUGS (2)
  1. ACETYLSALICYLIC ACID({=100 MG) [Suspect]
     Active Substance: ASPIRIN
     Indication: ANTIPLATELET THERAPY
  2. HEPARIN [Interacting]
     Active Substance: HEPARIN SODIUM
     Indication: ANTICOAGULANT THERAPY
     Dosage: UNK

REACTIONS (5)
  - Brain contusion [Fatal]
  - Labelled drug-drug interaction medication error [Fatal]
  - Drug administration error [Fatal]
  - Traumatic intracranial haemorrhage [Fatal]
  - Extradural haematoma [Fatal]
